APPROVED DRUG PRODUCT: SECOBARBITAL SODIUM
Active Ingredient: SECOBARBITAL SODIUM
Strength: 100MG
Dosage Form/Route: CAPSULE;ORAL
Application: A085867 | Product #001
Applicant: PUREPAC PHARMACEUTICAL CO
Approved: Approved Prior to Jan 1, 1982 | RLD: No | RS: No | Type: DISCN